FAERS Safety Report 20140345 (Version 1)
Quarter: 2021Q4

REPORT INFORMATION
  Report Type: Spontaneous
  Country: US (occurrence: None)
  Receive Date: 20211202
  Receipt Date: 20211202
  Transmission Date: 20220303
  Serious: Yes (Hospitalization)
  Sender: FDA-Public Use
  Company Number: None

PATIENT
  Sex: Female
  Weight: 96.8 kg

DRUGS (2)
  1. DEXAMETHASONE [Suspect]
     Active Substance: DEXAMETHASONE
     Dates: end: 20181030
  2. LENALIDOMIDE [Suspect]
     Active Substance: LENALIDOMIDE
     Indication: Product used for unknown indication
     Dates: end: 20210115

REACTIONS (11)
  - Fall [None]
  - Blood glucose decreased [None]
  - Atrial fibrillation [None]
  - Troponin increased [None]
  - SARS-CoV-2 test positive [None]
  - Acute myocardial infarction [None]
  - White blood cell count increased [None]
  - Coinfection [None]
  - Bandaemia [None]
  - Oxygen saturation decreased [None]
  - Pyrexia [None]

NARRATIVE: CASE EVENT DATE: 20210116
